FAERS Safety Report 25353685 (Version 1)
Quarter: 2025Q2

REPORT INFORMATION
  Report Type: Spontaneous
  Country: US (occurrence: US)
  Receive Date: 20250523
  Receipt Date: 20250523
  Transmission Date: 20250716
  Serious: Yes (Hospitalization, Other)
  Sender: JOHNSON AND JOHNSON
  Company Number: US-JNJFOC-20250520704

PATIENT
  Age: 54 Year
  Sex: Female

DRUGS (14)
  1. UPTRAVI [Suspect]
     Active Substance: SELEXIPAG
     Indication: Pulmonary arterial hypertension
     Route: 048
     Dates: end: 2024
  2. TREPROSTINIL SODIUM [Suspect]
     Active Substance: TREPROSTINIL SODIUM
     Indication: Pulmonary arterial hypertension
     Route: 058
     Dates: start: 202408, end: 2024
  3. TREPROSTINIL SODIUM [Suspect]
     Active Substance: TREPROSTINIL SODIUM
     Route: 058
     Dates: start: 2024
  4. TREPROSTINIL SODIUM [Suspect]
     Active Substance: TREPROSTINIL SODIUM
     Route: 058
     Dates: start: 2024
  5. TREPROSTINIL SODIUM [Suspect]
     Active Substance: TREPROSTINIL SODIUM
     Route: 058
     Dates: start: 2024
  6. TREPROSTINIL SODIUM [Suspect]
     Active Substance: TREPROSTINIL SODIUM
     Route: 058
     Dates: start: 202408, end: 2024
  7. TREPROSTINIL SODIUM [Suspect]
     Active Substance: TREPROSTINIL SODIUM
     Route: 058
     Dates: start: 2024, end: 2024
  8. TREPROSTINIL SODIUM [Suspect]
     Active Substance: TREPROSTINIL SODIUM
     Route: 058
     Dates: start: 2024
  9. TREPROSTINIL SODIUM [Suspect]
     Active Substance: TREPROSTINIL SODIUM
     Route: 058
     Dates: start: 2024
  10. TREPROSTINIL SODIUM [Suspect]
     Active Substance: TREPROSTINIL SODIUM
     Route: 058
     Dates: start: 2024
  11. TREPROSTINIL SODIUM [Suspect]
     Active Substance: TREPROSTINIL SODIUM
     Route: 058
     Dates: start: 2024
  12. TREPROSTINIL SODIUM [Suspect]
     Active Substance: TREPROSTINIL SODIUM
     Route: 058
     Dates: start: 202408
  13. SOTATERCEPT [Suspect]
     Active Substance: SOTATERCEPT
     Route: 058
  14. AMBRISENTAN [Concomitant]
     Active Substance: AMBRISENTAN
     Indication: Product used for unknown indication

REACTIONS (32)
  - Infection [Unknown]
  - Cardiac failure [Unknown]
  - Fluid retention [Unknown]
  - Electrocardiogram abnormal [Unknown]
  - Syncope [Unknown]
  - Dyspnoea exertional [Unknown]
  - Oedema peripheral [Unknown]
  - Abdominal wall oedema [Unknown]
  - Face oedema [Unknown]
  - Chest pain [Unknown]
  - Pollakiuria [Unknown]
  - Dizziness exertional [Unknown]
  - Dermatitis contact [Unknown]
  - Flushing [Unknown]
  - Headache [Unknown]
  - Infusion site swelling [Unknown]
  - Infusion site discharge [Unknown]
  - Infusion site warmth [Unknown]
  - Infusion site reaction [Unknown]
  - Dizziness [Unknown]
  - Productive cough [Unknown]
  - Pain [Unknown]
  - Injection site pruritus [Unknown]
  - Sensitive skin [Unknown]
  - Chest discomfort [Unknown]
  - Injection site scar [Unknown]
  - Injection site inflammation [Unknown]
  - Anxiety [Unknown]
  - Infusion site pain [Unknown]
  - Infusion site erythema [Unknown]
  - Diarrhoea [Unknown]
  - Nasopharyngitis [Unknown]
